FAERS Safety Report 4976310-6 (Version None)
Quarter: 2006Q2

REPORT INFORMATION
  Report Type: 
  Country: None (occurrence: None)
  Receive Date: 20060412
  Receipt Date: 20060404
  Transmission Date: 20061013
  Serious: Yes (Hospitalization, Other)
  Sender: FDA-Public Use
  Company Number: 2006047194

PATIENT
  Age: 81 Year
  Sex: Female
  Weight: 59.4212 kg

DRUGS (6)
  1. LIPITOR [Suspect]
     Indication: BLOOD CHOLESTEROL INCREASED
     Dosage: 5 MG (10 MG, 1 IN 2 D), ORAL
     Route: 048
     Dates: start: 20050101
  2. NORVASC [Concomitant]
  3. TOPROL-XL [Concomitant]
  4. NEXIUM [Concomitant]
  5. WARFARIN SODIUM [Concomitant]
  6. IMDUR [Concomitant]

REACTIONS (2)
  - ANAEMIA [None]
  - COLON CANCER [None]
